FAERS Safety Report 5629741-5 (Version None)
Quarter: 2008Q1

REPORT INFORMATION
  Report Type: 
  Country: None (occurrence: None)
  Receive Date: 20080218
  Receipt Date: 20080208
  Transmission Date: 20080703
  Serious: Yes (Other)
  Sender: FDA-Public Use
  Company Number: GB-ASTRAZENECA-2008GB00257

PATIENT
  Sex: Female

DRUGS (3)
  1. SEROQUEL [Suspect]
     Indication: SCHIZOPHRENIA
     Route: 048
  2. DICLOXATINE [Concomitant]
  3. RISPERIDONE CONTRA [Concomitant]
     Indication: SCHIZOPHRENIA

REACTIONS (2)
  - CONFUSIONAL STATE [None]
  - HEPATITIS [None]
